FAERS Safety Report 4400819-7 (Version None)
Quarter: 2004Q3

REPORT INFORMATION
  Report Type: 
  Country: None (occurrence: None)
  Receive Date: 20040907
  Receipt Date: 20030624
  Transmission Date: 20050211
  Serious: No
  Sender: FDA-Public Use
  Company Number: US-BRISTOL-MYERS SQUIBB COMPANY-12308821

PATIENT
  Age: 85 Year
  Sex: Male
  Weight: 95 kg

DRUGS (2)
  1. COUMADIN [Suspect]
     Indication: DEEP VEIN THROMBOSIS
     Route: 048
     Dates: start: 19630101
  2. KRISTALOSE [Interacting]
     Indication: CONSTIPATION
     Route: 048
     Dates: start: 20030528

REACTIONS (3)
  - DRUG INTERACTION [None]
  - NAUSEA [None]
  - STOMACH DISCOMFORT [None]
